FAERS Safety Report 6158141-7 (Version None)
Quarter: 2009Q2

REPORT INFORMATION
  Report Type: 
  Country: None (occurrence: None)
  Receive Date: 20090417
  Receipt Date: 20070507
  Transmission Date: 20091009
  Serious: Yes (Hospitalization, Other)
  Sender: FDA-Public Use
  Company Number: US-ASTRAZENECA-2006UW10969

PATIENT
  Age: 12776 Day
  Sex: Female
  Weight: 105.2 kg

DRUGS (36)
  1. SEROQUEL [Suspect]
     Indication: DEPRESSION
     Route: 048
     Dates: start: 19970101, end: 20060901
  2. SEROQUEL [Suspect]
     Indication: BIPOLAR DISORDER
     Route: 048
     Dates: start: 19970101, end: 20060901
  3. SEROQUEL [Suspect]
     Dosage: 25MG-400MG
     Route: 048
     Dates: start: 19970101
  4. SEROQUEL [Suspect]
     Dosage: 25MG-400MG
     Route: 048
     Dates: start: 19970101
  5. DEPAKOTE [Suspect]
     Dosage: 250MG-2000MG
     Route: 048
  6. ZYPREXA [Concomitant]
  7. CLOZARIL [Concomitant]
  8. THORAZINE [Concomitant]
  9. CHLORPROMAZINE HYDROCHLORIDE [Concomitant]
  10. TOPAMAX [Concomitant]
  11. TRAZODONE HCL [Concomitant]
  12. PRILOSEC [Concomitant]
  13. SYNTHROID [Concomitant]
  14. TEGRETOL-XR [Concomitant]
  15. LAMICTAL [Concomitant]
  16. PERCOCET [Concomitant]
  17. PROVENTIL [Concomitant]
     Dates: start: 20070412, end: 20080410
  18. MULTIVITAMIN WITH MINERAL [Concomitant]
  19. AMITRIPTYLINE HCL [Concomitant]
  20. LITHIUM CARBONATE [Concomitant]
  21. IMITREX [Concomitant]
  22. MIDRIN [Concomitant]
  23. MOBIC [Concomitant]
  24. DIFLUCAN [Concomitant]
  25. GLUCOPHAGE XR [Concomitant]
     Dates: end: 20040211
  26. AMANTADINE HCL [Concomitant]
  27. NAPROSYN [Concomitant]
  28. ACIPHEX [Concomitant]
  29. HYDROCODONE BITARTRATE [Concomitant]
     Dates: end: 20040209
  30. NEURONTIN [Concomitant]
  31. ACTOS [Concomitant]
  32. XANAX [Concomitant]
  33. ESKALITH CR [Concomitant]
  34. FLOVENT [Concomitant]
  35. QUESTRAN [Concomitant]
  36. PREDNISONE [Concomitant]

REACTIONS (32)
  - ABNORMAL DREAMS [None]
  - ASTHMA [None]
  - BACK PAIN [None]
  - BIPOLAR DISORDER [None]
  - CANDIDIASIS [None]
  - CHOLECYSTITIS ACUTE [None]
  - CHOLELITHIASIS [None]
  - COUGH [None]
  - CYSTITIS [None]
  - DEHYDRATION [None]
  - DERMATITIS ALLERGIC [None]
  - DIARRHOEA [None]
  - DYSMENORRHOEA [None]
  - GASTRITIS [None]
  - GASTROENTERITIS [None]
  - GASTROOESOPHAGEAL REFLUX DISEASE [None]
  - HEPATITIS [None]
  - HIATUS HERNIA [None]
  - HYPOTHYROIDISM [None]
  - INSOMNIA [None]
  - METABOLIC SYNDROME [None]
  - MIGRAINE [None]
  - PANCREATITIS [None]
  - RECTAL HAEMORRHAGE [None]
  - RESPIRATORY TRACT CONGESTION [None]
  - SINUSITIS [None]
  - SUICIDAL IDEATION [None]
  - TENDONITIS [None]
  - TYPE 2 DIABETES MELLITUS [None]
  - UPPER RESPIRATORY TRACT INFECTION [None]
  - VULVOVAGINAL CANDIDIASIS [None]
  - WRIST FRACTURE [None]
